FAERS Safety Report 8319671-2 (Version None)
Quarter: 2012Q2

REPORT INFORMATION
  Report Type: 
  Country: None (occurrence: None)
  Receive Date: 20120427
  Receipt Date: 20120420
  Transmission Date: 20120825
  Serious: Yes (Hospitalization)
  Sender: FDA-Public Use
  Company Number: FR-B.I. PHARMACEUTICALS,INC./RIDGEFIELD-2012-FF-00487FF

PATIENT
  Sex: Male

DRUGS (11)
  1. LOVENOX [Suspect]
     Dosage: 4000 IU ANTIXA/0.4ML
     Route: 058
     Dates: start: 20120118, end: 20120220
  2. TANGANIL [Concomitant]
     Dosage: 1000 MG
     Route: 048
  3. CORDARONE [Concomitant]
     Route: 048
     Dates: start: 20120213
  4. TRAMADOL HCL [Concomitant]
     Dosage: 200 MG
     Route: 048
     Dates: end: 20120202
  5. PRADAXA [Suspect]
     Indication: ATRIAL FIBRILLATION
     Dosage: 220 MG
     Route: 048
     Dates: start: 20120213, end: 20120302
  6. ACETAMINOPHEN [Concomitant]
     Dosage: 1 G
     Route: 048
  7. BACTRIM DS [Concomitant]
     Route: 048
     Dates: start: 20120221, end: 20120302
  8. DIGOXIN [Suspect]
     Dosage: 0.125 MG
     Route: 048
     Dates: start: 20120213
  9. NICARDIPINE HYDROCHLORIDE [Concomitant]
     Route: 048
     Dates: end: 20120203
  10. RABEPRAZOLE SODIUM [Concomitant]
     Dosage: 20 MG
     Route: 048
  11. DUPHALAC [Concomitant]
     Route: 048

REACTIONS (3)
  - PROTHROMBIN TIME SHORTENED [None]
  - HAEMATOMA [None]
  - ACTIVATED PARTIAL THROMBOPLASTIN TIME PROLONGED [None]
